FAERS Safety Report 17691402 (Version 1)
Quarter: 2020Q2

REPORT INFORMATION
  Report Type: Spontaneous
  Country: US (occurrence: US)
  Receive Date: 20200422
  Receipt Date: 20200422
  Transmission Date: 20200714
  Serious: No
  Sender: FDA-Public Use
  Company Number: US-CIPLA LTD.-2019US06991

PATIENT

DRUGS (12)
  1. HYDROXYZINE [Suspect]
     Active Substance: HYDROXYZINE HYDROCHLORIDE
     Indication: PRURITUS
     Dosage: UNK, 3-4 TIMES A DAY
     Route: 065
  2. EUCRISA [Suspect]
     Active Substance: CRISABOROLE
     Indication: URTICARIA
  3. CORTISONE [Suspect]
     Active Substance: CORTISONE
     Indication: ALLERGIC REACTION TO EXCIPIENT
  4. EUCRISA [Suspect]
     Active Substance: CRISABOROLE
     Indication: PRURITUS
     Dosage: UNK, 3-4 TIMES A DAY, OINTMENT
     Route: 065
  5. EUCRISA [Suspect]
     Active Substance: CRISABOROLE
     Indication: ALLERGIC REACTION TO EXCIPIENT
  6. PEPCID [Suspect]
     Active Substance: FAMOTIDINE
     Indication: PRURITUS
     Dosage: UNK, 3-4 TIMES A DAY, TABLET
     Route: 065
  7. CORTISONE [Suspect]
     Active Substance: CORTISONE
     Indication: URTICARIA
  8. TOPIRAMATE. [Suspect]
     Active Substance: TOPIRAMATE
     Indication: MIGRAINE
     Dosage: 2 DOSAGE FORM, QD (TWO, 200 MILLIGRAM, ONCE AT NIGHT)
     Route: 048
     Dates: start: 201910
  9. CLARITIN [CLARITHROMYCIN] [Suspect]
     Active Substance: CLARITHROMYCIN
     Indication: PRURITUS
     Dosage: UNK, 3-4 TIMES A DAY, OINTMENT
     Route: 065
  10. CLARITIN [CLARITHROMYCIN] [Suspect]
     Active Substance: CLARITHROMYCIN
     Indication: URTICARIA
  11. CLARITIN [CLARITHROMYCIN] [Suspect]
     Active Substance: CLARITHROMYCIN
     Indication: ALLERGIC REACTION TO EXCIPIENT
  12. CORTISONE [Suspect]
     Active Substance: CORTISONE
     Indication: PRURITUS
     Dosage: UNK, 3-4 TIMES A DAY, OINTMENT
     Route: 065

REACTIONS (5)
  - Allergic reaction to excipient [Not Recovered/Not Resolved]
  - Drug ineffective [Unknown]
  - Vomiting [Unknown]
  - Pruritus [Not Recovered/Not Resolved]
  - Urticaria [Not Recovered/Not Resolved]

NARRATIVE: CASE EVENT DATE: 201910
